FAERS Safety Report 23624840 (Version 3)
Quarter: 2024Q2

REPORT INFORMATION
  Report Type: Spontaneous
  Country: ES (occurrence: ES)
  Receive Date: 20240313
  Receipt Date: 20240403
  Transmission Date: 20240716
  Serious: Yes (Hospitalization, Other)
  Sender: FDA-Public Use
  Company Number: ES-Eisai-EC-2024-160122

PATIENT
  Age: 14 Year
  Sex: Male
  Weight: 80.4 kg

DRUGS (4)
  1. VALPROIC ACID [Suspect]
     Active Substance: VALPROIC ACID
     Indication: Generalised tonic-clonic seizure
     Dosage: UNK (DOSE AND FREQUENCY UNKNOWN)
     Route: 065
  2. FYCOMPA [Suspect]
     Active Substance: PERAMPANEL
     Indication: Product used for unknown indication
     Dosage: UNK (DOSE AND FREQUENCY UNKNOWN)
     Route: 042
  3. FYCOMPA [Suspect]
     Active Substance: PERAMPANEL
     Indication: Generalised tonic-clonic seizure
     Dosage: 6 MILLIGRAM, ONCE A DAY
     Route: 048
  4. LEVETIRACETAM [Concomitant]
     Active Substance: LEVETIRACETAM
     Indication: Generalised tonic-clonic seizure
     Dosage: 2000 MILLIGRAM, ONCE A DAY
     Route: 065
     Dates: start: 20210916

REACTIONS (2)
  - Epileptic psychosis [Not Recovered/Not Resolved]
  - Acute psychosis [Unknown]

NARRATIVE: CASE EVENT DATE: 20240110
